FAERS Safety Report 19072665 (Version 1)
Quarter: 2021Q1

REPORT INFORMATION
  Report Type: Spontaneous
  Country: US (occurrence: US)
  Receive Date: 20210330
  Receipt Date: 20210330
  Transmission Date: 20210420
  Serious: Yes (Other)
  Sender: FDA-Public Use
  Company Number: None

PATIENT
  Age: 50 Year
  Sex: Male
  Weight: 67.4 kg

DRUGS (5)
  1. DEPAKOTE [Concomitant]
     Active Substance: DIVALPROEX SODIUM
     Dates: start: 20201102
  2. NORTRIPTYLINE 25 MG [Concomitant]
     Dates: start: 20201102
  3. BUTALBITAL [Concomitant]
     Active Substance: BUTALBITAL
     Dates: start: 20200101
  4. UBROGEPANT [Suspect]
     Active Substance: UBROGEPANT
     Indication: MIGRAINE
     Route: 048
     Dates: start: 20210129, end: 20210130
  5. GABAPENTIN 300 MG [Concomitant]
     Active Substance: GABAPENTIN
     Dates: start: 20200101

REACTIONS (2)
  - Suicidal ideation [None]
  - Anxiety [None]

NARRATIVE: CASE EVENT DATE: 20210129
